FAERS Safety Report 6468295-0 (Version None)
Quarter: 2009Q4

REPORT INFORMATION
  Report Type: 
  Country: None (occurrence: None)
  Receive Date: 20091130
  Receipt Date: 20091110
  Transmission Date: 20100525
  Serious: Yes (Hospitalization)
  Sender: FDA-Public Use
  Company Number: 2009000906

PATIENT
  Age: 54 Year
  Sex: Female

DRUGS (2)
  1. ERLOTINIB HYDROCHLORIDE [Suspect]
     Indication: NON-SMALL CELL LUNG CANCER
     Dosage: 150 MG,QD,ORAL
     Route: 048
     Dates: start: 20090220, end: 20090717
  2. RO4858696 - R1507 [Suspect]
     Indication: NON-SMALL CELL LUNG CANCER
     Dosage: 513 MG/KG,QW,INTRAVENOUS
     Route: 042
     Dates: start: 20090220, end: 20090724

REACTIONS (4)
  - CONVULSION [None]
  - MALIGNANT NEOPLASM PROGRESSION [None]
  - METASTASES TO CENTRAL NERVOUS SYSTEM [None]
  - NON-SMALL CELL LUNG CANCER [None]
